FAERS Safety Report 6500256-5 (Version None)
Quarter: 2009Q4

REPORT INFORMATION
  Report Type: 
  Country: None (occurrence: None)
  Receive Date: 20091215
  Receipt Date: 20091215
  Transmission Date: 20100525
  Serious: No
  Sender: FDA-Public Use
  Company Number: None

PATIENT
  Age: 68 Year
  Sex: Male
  Weight: 104.7809 kg

DRUGS (2)
  1. AMOXICILLIN [Suspect]
     Indication: DENTAL CARE
     Dosage: 500 MG EVERY 8 HRS. ORAL 18 PILLS 3 PILLS
     Route: 048
     Dates: start: 20091029
  2. AMOXICILLIN [Suspect]
     Indication: DENTAL CARE
     Dosage: 500 MG EVERY 8 HRS. ORAL 18 PILLS 3 PILLS
     Route: 048
     Dates: start: 20091202

REACTIONS (4)
  - BLOOD URINE PRESENT [None]
  - DIARRHOEA [None]
  - NEPHROLITHIASIS [None]
  - TOOTH EXTRACTION [None]
